FAERS Safety Report 4793584-5 (Version None)
Quarter: 2005Q4

REPORT INFORMATION
  Report Type: 
  Country: None (occurrence: None)
  Receive Date: 20051011
  Receipt Date: 20050829
  Transmission Date: 20060501
  Serious: Yes (Hospitalization, Other)
  Sender: FDA-Public Use
  Company Number: JP-BRACCO-BRO-009070

PATIENT
  Sex: Male
  Weight: 62 kg

DRUGS (10)
  1. IOPAMIRON [Suspect]
     Indication: LARYNGEAL CANCER
     Route: 042
     Dates: start: 20050823, end: 20050823
  2. IOPAMIRON [Suspect]
     Route: 042
     Dates: start: 20050823, end: 20050823
  3. KLARICID [Concomitant]
     Route: 050
  4. DIART [Concomitant]
     Route: 050
  5. FLEMPHYLINE [Concomitant]
     Route: 050
  6. CASODEX [Concomitant]
     Route: 050
  7. AVISHOT [Concomitant]
     Route: 050
  8. ALLOPURINOL [Concomitant]
     Route: 050
  9. FLUTIDE [Concomitant]
     Route: 050
  10. SEREVENT [Concomitant]
     Route: 050

REACTIONS (10)
  - ACIDOSIS [None]
  - ANAPHYLACTIC SHOCK [None]
  - BLOOD PRESSURE DECREASED [None]
  - CEREBRAL INFARCTION [None]
  - DYSPNOEA [None]
  - FEELING ABNORMAL [None]
  - HEMIPARESIS [None]
  - HYPERHIDROSIS [None]
  - LOSS OF CONSCIOUSNESS [None]
  - RESPIRATORY ARREST [None]
